FAERS Safety Report 21415995 (Version 2)
Quarter: 2022Q4

REPORT INFORMATION
  Report Type: Spontaneous
  Country: JP (occurrence: JP)
  Receive Date: 20221006
  Receipt Date: 20221124
  Transmission Date: 20230113
  Serious: Yes (Hospitalization, Other)
  Sender: FDA-Public Use
  Company Number: JP-ASTELLAS-2022JP007814

PATIENT
  Age: 7 Decade
  Sex: Male

DRUGS (12)
  1. PADCEV [Suspect]
     Active Substance: ENFORTUMAB VEDOTIN-EJFV
     Indication: Transitional cell carcinoma
     Dosage: 1.25 MG/KG, ONCE-WEEKLY DOSING FOR 3 CONSECUTIVE WEEKS, INTERRUPTED FOR THE 4TH WEEK
     Route: 041
     Dates: start: 20220517, end: 202205
  2. PADCEV [Suspect]
     Active Substance: ENFORTUMAB VEDOTIN-EJFV
     Dosage: 1.0 MG/KG, ONCE WEEKLY
     Route: 041
     Dates: start: 20220622, end: 20220803
  3. PREDONINE [Suspect]
     Active Substance: PREDNISOLONE
     Indication: Rash maculo-papular
     Dosage: UNK UNK, UNKNOWN FREQ.
     Route: 048
     Dates: start: 20220524
  4. PREDONINE [Suspect]
     Active Substance: PREDNISOLONE
     Route: 048
  5. PREDONINE [Suspect]
     Active Substance: PREDNISOLONE
     Route: 048
  6. ALLELOCK [Concomitant]
     Active Substance: OLOPATADINE HYDROCHLORIDE
     Indication: Rash maculo-papular
     Dosage: UNK UNK, UNKNOWN FREQ.
     Route: 048
     Dates: start: 20220524
  7. KEYTRUDA [Concomitant]
     Active Substance: PEMBROLIZUMAB
     Indication: Product used for unknown indication
     Dosage: UNK UNK, UNKNOWN FREQ.
     Route: 065
  8. INSULIN NOS [Concomitant]
     Active Substance: INSULIN NOS
     Indication: Blood glucose increased
     Dosage: UNK UNK, UNKNOWN FREQ.
     Route: 065
     Dates: start: 20220622
  9. TRESIBA [Concomitant]
     Active Substance: INSULIN DEGLUDEC
     Indication: Blood glucose increased
     Dosage: UNK UNK, UNKNOWN FREQ.
     Route: 065
  10. NOVORAPID [Concomitant]
     Active Substance: INSULIN ASPART
     Indication: Blood glucose increased
     Dosage: UNK UNK, UNKNOWN FREQ.
     Route: 065
  11. GEMCITABINE [Concomitant]
     Active Substance: GEMCITABINE
     Indication: Product used for unknown indication
     Dosage: UNK UNK, UNKNOWN FREQ.
     Route: 065
  12. CISPLATIN [Concomitant]
     Active Substance: CISPLATIN
     Indication: Product used for unknown indication
     Dosage: UNK UNK, UNKNOWN FREQ.
     Route: 065

REACTIONS (7)
  - Erythema [Recovered/Resolved]
  - Rash papular [Recovered/Resolved]
  - Dermatitis bullous [Recovered/Resolved]
  - Pruritus [Recovered/Resolved]
  - Blood glucose increased [Recovered/Resolved]
  - Decreased appetite [Recovered/Resolved]
  - Spinal cord neoplasm [Recovered/Resolved]

NARRATIVE: CASE EVENT DATE: 20220522
